FAERS Safety Report 15215726 (Version 1)
Quarter: 2018Q3

REPORT INFORMATION
  Report Type: Report from Study
  Country: CA (occurrence: CA)
  Receive Date: 20180730
  Receipt Date: 20180730
  Transmission Date: 20181010
  Serious: Yes (Hospitalization)
  Sender: FDA-Public Use
  Company Number: CA-HLSUS-2018-CA-001112

PATIENT
  Sex: Female

DRUGS (1)
  1. CLOZARIL [Suspect]
     Active Substance: CLOZAPINE
     Dosage: 600?625MG/DAY
     Route: 048
     Dates: start: 20180219

REACTIONS (4)
  - Sinus tachycardia [Unknown]
  - White blood cell count increased [Unknown]
  - Condition aggravated [Unknown]
  - Blood pressure systolic increased [Unknown]
